FAERS Safety Report 8544283-5 (Version None)
Quarter: 2012Q3

REPORT INFORMATION
  Report Type: 
  Country: None (occurrence: None)
  Receive Date: 20120727
  Receipt Date: 20120418
  Transmission Date: 20120928
  Serious: Yes (Hospitalization, Disabling, Other)
  Sender: FDA-Public Use
  Company Number: US-009507513-1108USA02813

PATIENT

DRUGS (6)
  1. FOSAMAX PLUS D [Suspect]
     Indication: OSTEOPENIA
     Dosage: 70MG/2800
     Route: 048
     Dates: start: 20060401, end: 20081223
  2. FOSAMAX [Suspect]
     Indication: OSTEOPENIA
     Dosage: 10 MG, QD
     Route: 048
     Dates: start: 19971215, end: 19990305
  3. FOSAMAX [Suspect]
     Dosage: 70 MG, QW
     Route: 048
     Dates: start: 20010201, end: 20091001
  4. FOSAMAX [Suspect]
     Dosage: 70 MG, QW
     Route: 048
     Dates: start: 20090119, end: 20100219
  5. FOSAMAX [Suspect]
     Dosage: 10 MG, QD
     Route: 048
     Dates: start: 19991021, end: 20010101
  6. CALCIUM (UNSPECIFIED) (+) VITAMIN D (UNSPECIFIED) [Concomitant]
     Dates: start: 19970101

REACTIONS (63)
  - BACK PAIN [None]
  - FIBROCYSTIC BREAST DISEASE [None]
  - BREAST MASS [None]
  - NEOPLASM SKIN [None]
  - PAIN IN EXTREMITY [None]
  - EAR DISORDER [None]
  - OTITIS EXTERNA [None]
  - ADVERSE EVENT [None]
  - BREAST DISORDER FEMALE [None]
  - ADVERSE DRUG REACTION [None]
  - GLUCOSE TOLERANCE TEST ABNORMAL [None]
  - HYPOVOLAEMIA [None]
  - CHEST PAIN [None]
  - MICTURITION URGENCY [None]
  - OTITIS MEDIA ACUTE [None]
  - OSTEOPOROSIS [None]
  - HYPERTENSION [None]
  - BLOOD PRESSURE INCREASED [None]
  - IRON DEFICIENCY ANAEMIA [None]
  - RHINITIS SEASONAL [None]
  - INTERVERTEBRAL DISC DEGENERATION [None]
  - POLLAKIURIA [None]
  - SKIN PAPILLOMA [None]
  - LOW TURNOVER OSTEOPATHY [None]
  - ARTHROPATHY [None]
  - TEMPOROMANDIBULAR JOINT SYNDROME [None]
  - MUSCULOSKELETAL PAIN [None]
  - FEMUR FRACTURE [None]
  - VITAMIN D DEFICIENCY [None]
  - BLOOD CHOLESTEROL INCREASED [None]
  - ARTHRITIS [None]
  - SINUSITIS [None]
  - MYALGIA [None]
  - SUPRAVENTRICULAR TACHYCARDIA [None]
  - HIP FRACTURE [None]
  - EAR PAIN [None]
  - BURSITIS [None]
  - SCOLIOSIS [None]
  - OESTROGEN DEFICIENCY [None]
  - MYOSITIS [None]
  - URTICARIA [None]
  - BODY TINEA [None]
  - OROPHARYNGEAL PAIN [None]
  - DRUG INEFFECTIVE [None]
  - FIBROADENOMA OF BREAST [None]
  - SPINAL OSTEOARTHRITIS [None]
  - IMPAIRED HEALING [None]
  - KYPHOSIS [None]
  - SPINAL COLUMN STENOSIS [None]
  - HYPOKALAEMIA [None]
  - HYPERCHOLESTEROLAEMIA [None]
  - ESSENTIAL HYPERTENSION [None]
  - SEASONAL ALLERGY [None]
  - RASH [None]
  - VERTEBRAL FORAMINAL STENOSIS [None]
  - SKIN INFECTION [None]
  - ARTHRALGIA [None]
  - GAIT DISTURBANCE [None]
  - GASTROOESOPHAGEAL REFLUX DISEASE [None]
  - OSTEOARTHRITIS [None]
  - ANXIETY [None]
  - HYPERLIPIDAEMIA [None]
  - HEADACHE [None]
